FAERS Safety Report 7986807-2 (Version None)
Quarter: 2011Q4

REPORT INFORMATION
  Report Type: 
  Country: None (occurrence: None)
  Receive Date: 20111216
  Receipt Date: 20111024
  Transmission Date: 20120403
  Serious: No
  Sender: FDA-Public Use
  Company Number: US-BRISTOL-MYERS SQUIBB COMPANY-16012809

PATIENT
  Age: 61 Year
  Sex: Male
  Weight: 99 kg

DRUGS (4)
  1. ABILIFY [Suspect]
     Indication: TACHYPHRENIA
     Dosage: QAM
     Route: 048
     Dates: start: 20110606
  2. ABILIFY [Suspect]
     Indication: TOURETTE'S DISORDER
     Dosage: QAM
     Route: 048
     Dates: start: 20110606
  3. ATENOLOL [Concomitant]
  4. WELLBUTRIN [Concomitant]

REACTIONS (3)
  - WEIGHT INCREASED [None]
  - MEMORY IMPAIRMENT [None]
  - SEXUAL DYSFUNCTION [None]
